FAERS Safety Report 8465637 (Version 2)
Quarter: 2013Q2

REPORT INFORMATION
  Report Type: Spontaneous
  Country: US (occurrence: None)
  Receive Date: 20120313
  Receipt Date: 20130327
  Transmission Date: 20140414
  Serious: Yes (Death)
  Sender: FDA-Public Use
  Company Number: 2012-1146

PATIENT
  Sex: Female

DRUGS (1)
  1. SOMATULINE DEPOT [Suspect]
     Indication: ACROMEGALY
     Dosage: 90 MG (90 MG),SUBCUTANEOUS
     Route: 058
     Dates: start: 20111104, end: 20111104

REACTIONS (1)
  - CEREBROVASCULAR ACCIDENT [None]
